FAERS Safety Report 19426394 (Version 1)
Quarter: 2021Q2

REPORT INFORMATION
  Report Type: Spontaneous
  Country: JP (occurrence: JP)
  Receive Date: 20210616
  Receipt Date: 20210616
  Transmission Date: 20210717
  Serious: Yes (Other)
  Sender: FDA-Public Use
  Company Number: JP-TAKEDA-2021TUS036633

PATIENT
  Age: 64 Year
  Sex: Male

DRUGS (1)
  1. 405 (LANTHANUM CARBONATE) [Suspect]
     Active Substance: LANTHANUM CARBONATE
     Indication: HELICOBACTER INFECTION
     Dosage: 1500 MILLIGRAM, QD
     Route: 065

REACTIONS (1)
  - Gastric cancer [Unknown]
